FAERS Safety Report 7003743-9 (Version None)
Quarter: 2010Q3

REPORT INFORMATION
  Report Type: 
  Country: None (occurrence: None)
  Receive Date: 20100920
  Receipt Date: 20100917
  Transmission Date: 20110219
  Serious: Yes (Other)
  Sender: FDA-Public Use
  Company Number: US-BRISTOL-MYERS SQUIBB COMPANY-15291644

PATIENT
  Sex: Female
  Weight: 41 kg

DRUGS (1)
  1. ERBITUX [Suspect]

REACTIONS (2)
  - PNEUMOPERITONEUM [None]
  - RASH [None]
